FAERS Safety Report 5961102-1 (Version None)
Quarter: 2008Q4

REPORT INFORMATION
  Report Type: 
  Country: None (occurrence: None)
  Receive Date: 20081121
  Receipt Date: 20081112
  Transmission Date: 20090506
  Serious: Yes (Hospitalization)
  Sender: FDA-Public Use
  Company Number: AT-JNJFOC-20081102779

PATIENT
  Sex: Female
  Weight: 40.4 kg

DRUGS (8)
  1. REMICADE [Suspect]
     Route: 042
  2. REMICADE [Suspect]
     Indication: COLITIS ULCERATIVE
     Dosage: 3 INFUSIONS ON UNSPECIFIED DATES
     Route: 042
  3. SALOFALK [Concomitant]
     Dosage: DOSE = 500 MG (2-1-2) AND ROUTE IS ^P.OS^
  4. METHOTREXATE [Concomitant]
     Route: 058
  5. BOSWELLIA SERRATA [Concomitant]
     Dosage: FREQUENCY = 3X2 AND ROUTE IS ^P.OS^
  6. CAL-D-VITA [Concomitant]
     Dosage: ROUTE IS ^P.OS^
  7. SOLUDACORTIN [Concomitant]
     Indication: PREMEDICATION
  8. CLEMASTINE FUMARATE [Concomitant]
     Indication: PREMEDICATION

REACTIONS (7)
  - ANGINA PECTORIS [None]
  - DYSPNOEA [None]
  - HYPOAESTHESIA [None]
  - INFUSION RELATED REACTION [None]
  - PERONEAL NERVE INJURY [None]
  - RASH [None]
  - VOMITING [None]
